FAERS Safety Report 8368478-9 (Version None)
Quarter: 2012Q2

REPORT INFORMATION
  Report Type: 
  Country: None (occurrence: None)
  Receive Date: 20120518
  Receipt Date: 20120504
  Transmission Date: 20120825
  Serious: Yes (Other)
  Sender: FDA-Public Use
  Company Number: DE-AMGEN-DEUSP2012016828

PATIENT
  Age: 56 Year
  Sex: Female
  Weight: 79 kg

DRUGS (6)
  1. AVELOX [Concomitant]
     Dosage: UNK
  2. ENBREL [Suspect]
     Indication: RHEUMATOID ARTHRITIS
     Dosage: 50 MG, WEEKLY
     Dates: start: 20100913
  3. SPIRO COMP. [Concomitant]
     Dosage: UNK
  4. METHOTREXATE [Concomitant]
     Dosage: 7.5 MG, UNK
     Route: 058
  5. TORSEMIDE [Concomitant]
     Dosage: 10 MG, UNK
  6. CORTISONE ACETATE [Concomitant]
     Dosage: 3 MG, UNK

REACTIONS (3)
  - NAUSEA [None]
  - UPPER RESPIRATORY TRACT INFECTION [None]
  - PNEUMONIA [None]
